FAERS Safety Report 14709145 (Version 1)
Quarter: 2018Q2

REPORT INFORMATION
  Report Type: Spontaneous
  Country: US (occurrence: US)
  Receive Date: 20180403
  Receipt Date: 20180403
  Transmission Date: 20180711
  Serious: Yes (Hospitalization, Other)
  Sender: FDA-Public Use
  Company Number: US-JNJFOC-20180344611

PATIENT
  Age: 45 Year
  Sex: Male

DRUGS (2)
  1. INVOKANA [Suspect]
     Active Substance: CANAGLIFLOZIN
     Indication: TYPE 2 DIABETES MELLITUS
     Route: 048
  2. INVOKANA [Suspect]
     Active Substance: CANAGLIFLOZIN
     Indication: TYPE 2 DIABETES MELLITUS
     Route: 048
     Dates: start: 20150827

REACTIONS (7)
  - Osteomyelitis [Unknown]
  - Staphylococcal infection [Unknown]
  - Toe amputation [Unknown]
  - Impaired healing [Unknown]
  - Cellulitis [Unknown]
  - Diabetic neuropathy [Unknown]
  - Foot amputation [Unknown]

NARRATIVE: CASE EVENT DATE: 20150930
